FAERS Safety Report 14831075 (Version 1)
Quarter: 2018Q2

REPORT INFORMATION
  Report Type: Spontaneous
  Country: US (occurrence: US)
  Receive Date: 20180501
  Receipt Date: 20180501
  Transmission Date: 20180711
  Serious: Yes (Other)
  Sender: FDA-Public Use
  Company Number: US-BEH-2018090131

PATIENT
  Age: 15 Year
  Sex: Female

DRUGS (2)
  1. HAEGARDA [Suspect]
     Active Substance: HUMAN C1-ESTERASE INHIBITOR
     Indication: HEREDITARY ANGIOEDEMA
     Dosage: 4000 IU, BIW (EVERY 3-4 DAYS)
     Route: 058
     Dates: start: 20180212
  2. HAEGARDA [Suspect]
     Active Substance: HUMAN C1-ESTERASE INHIBITOR
     Indication: PROPHYLAXIS

REACTIONS (4)
  - Nausea [Unknown]
  - Pain [Unknown]
  - Hereditary angioedema [Unknown]
  - Vomiting [Unknown]

NARRATIVE: CASE EVENT DATE: 20180417
